FAERS Safety Report 17145774 (Version 1)
Quarter: 2019Q4

REPORT INFORMATION
  Report Type: Spontaneous
  Country: PT (occurrence: PT)
  Receive Date: 20191212
  Receipt Date: 20191212
  Transmission Date: 20200122
  Serious: Yes (Life-Threatening, Other)
  Sender: FDA-Public Use
  Company Number: PT-SAMSUNG BIOEPIS-SB-2019-36725

PATIENT
  Age: 38 Year
  Sex: Female
  Weight: 49 kg

DRUGS (6)
  1. PROAXEN [Concomitant]
     Indication: MAJOR DEPRESSION
     Route: 048
  2. FLIXABI [Suspect]
     Active Substance: INFLIXIMAB
     Indication: AUTOIMMUNE DISORDER
     Dosage: 250 MG; 1 DAY; INDUCTION PHASE-WEEK 6
     Route: 042
     Dates: start: 20190508, end: 20190618
  3. INDERAL [Concomitant]
     Active Substance: PROPRANOLOL HYDROCHLORIDE
     Indication: MAJOR DEPRESSION
     Route: 048
  4. SEDOXIL [Concomitant]
     Active Substance: MEXAZOLAM
     Indication: MAJOR DEPRESSION
     Dosage: UNKNOWN, (1/2+0+1)
     Route: 048
  5. FLUOXETINE [Concomitant]
     Active Substance: FLUOXETINE HYDROCHLORIDE
     Indication: MAJOR DEPRESSION
     Route: 048
  6. MIRTAZAPINE. [Concomitant]
     Active Substance: MIRTAZAPINE
     Indication: MAJOR DEPRESSION
     Route: 048

REACTIONS (7)
  - Hyperhidrosis [Recovered/Resolved]
  - Blindness transient [Recovered/Resolved]
  - Chest pain [Recovered/Resolved]
  - Malaise [Recovered/Resolved]
  - Cough [Recovered/Resolved]
  - Myoclonus [Recovered/Resolved]
  - Product use in unapproved indication [Unknown]

NARRATIVE: CASE EVENT DATE: 20190618
